FAERS Safety Report 25903004 (Version 1)
Quarter: 2025Q4

REPORT INFORMATION
  Report Type: Spontaneous
  Country: US (occurrence: US)
  Receive Date: 20251009
  Receipt Date: 20251009
  Transmission Date: 20260117
  Serious: No
  Sender: ELI LILLY AND COMPANY
  Company Number: US-ELI_LILLY_AND_COMPANY-US202509029124

PATIENT
  Age: 45 Year
  Sex: Female

DRUGS (11)
  1. ZEPBOUND [Suspect]
     Active Substance: TIRZEPATIDE
     Indication: Weight control
     Dosage: UNK UNK, UNKNOWN
     Route: 065
  2. ZEPBOUND [Suspect]
     Active Substance: TIRZEPATIDE
     Indication: Migraine
  3. ZEPBOUND [Suspect]
     Active Substance: TIRZEPATIDE
     Indication: Weight control
     Dosage: 15 MG, UNKNOWN
     Route: 065
  4. ZEPBOUND [Suspect]
     Active Substance: TIRZEPATIDE
     Indication: Weight control
     Dosage: 15 MG, UNKNOWN
     Route: 065
  5. ZEPBOUND [Suspect]
     Active Substance: TIRZEPATIDE
     Indication: Weight control
     Dosage: 15 MG, UNKNOWN
     Route: 065
  6. ZEPBOUND [Suspect]
     Active Substance: TIRZEPATIDE
     Indication: Weight control
     Dosage: 15 MG, UNKNOWN
     Route: 065
  7. ZEPBOUND [Suspect]
     Active Substance: TIRZEPATIDE
     Indication: Weight control
     Dosage: 15 MG, UNKNOWN
     Route: 065
  8. ZEPBOUND [Suspect]
     Active Substance: TIRZEPATIDE
     Indication: Migraine
     Dosage: 15 MG, UNKNOWN
     Route: 065
     Dates: start: 20250926, end: 20250926
  9. ZEPBOUND [Suspect]
     Active Substance: TIRZEPATIDE
     Indication: Migraine
     Dosage: 15 MG, UNKNOWN
     Route: 065
     Dates: start: 20250926, end: 20250926
  10. ZEPBOUND [Suspect]
     Active Substance: TIRZEPATIDE
     Indication: Migraine
     Dosage: 15 MG, UNKNOWN
     Route: 065
     Dates: start: 20250926, end: 20250926
  11. ZEPBOUND [Suspect]
     Active Substance: TIRZEPATIDE
     Indication: Migraine
     Dosage: 15 MG, UNKNOWN
     Route: 065
     Dates: start: 20250926, end: 20250926

REACTIONS (2)
  - Incorrect dose administered [Unknown]
  - Injection site haemorrhage [Unknown]

NARRATIVE: CASE EVENT DATE: 20250926
